FAERS Safety Report 22018338 (Version 1)
Quarter: 2023Q1

REPORT INFORMATION
  Report Type: Spontaneous
  Country: JP (occurrence: JP)
  Receive Date: 20230221
  Receipt Date: 20230221
  Transmission Date: 20230418
  Serious: Yes (Death, Hospitalization)
  Sender: FDA-Public Use
  Company Number: JP-STRIDES ARCOLAB LIMITED-2023SP002501

PATIENT
  Age: 54 Year
  Sex: Female
  Weight: 65 kg

DRUGS (4)
  1. METHOTREXATE [Suspect]
     Active Substance: METHOTREXATE
     Indication: Rheumatoid arthritis
     Dosage: 8 MILLIGRAM, ONCE A WEEK
     Route: 065
  2. METHOTREXATE [Suspect]
     Active Substance: METHOTREXATE
     Dosage: 4 MILLIGRAM, (4050MG OF MTX OVER 13 YEARS)
     Route: 065
  3. INFLIXIMAB [Concomitant]
     Active Substance: INFLIXIMAB
     Indication: Rheumatoid arthritis
     Dosage: 3 MILLIGRAM/KILOGRAM PER DAY (2 TO 8 WEEKS)
     Route: 042
  4. ETANERCEPT [Concomitant]
     Active Substance: ETANERCEPT
     Indication: Rheumatoid arthritis
     Dosage: 50 MILLIGRAM, ONCE A WEEK (2 TO 8 WEEKS))
     Route: 058

REACTIONS (7)
  - Non-alcoholic steatohepatitis [Fatal]
  - Hepatic cirrhosis [Fatal]
  - Drug-induced liver injury [Fatal]
  - Hepatic failure [Fatal]
  - Oliguria [Unknown]
  - Thrombocytopenia [Unknown]
  - Drug ineffective [Unknown]
